FAERS Safety Report 9120492 (Version 3)
Quarter: 2013Q3

REPORT INFORMATION
  Report Type: Spontaneous
  Country: US (occurrence: US)
  Receive Date: 20130226
  Receipt Date: 20130723
  Transmission Date: 20140515
  Serious: No
  Sender: FDA-Public Use
  Company Number: US-B.I. PHARMACEUTICALS,INC./RIDGEFIELD-2013-BI-04714BP

PATIENT
  Age: 90 Year
  Sex: Female
  Weight: 48 kg

DRUGS (2)
  1. SPIRIVA [Suspect]
     Indication: CHRONIC OBSTRUCTIVE PULMONARY DISEASE
     Dosage: 18 MCG
     Route: 055
     Dates: start: 20120923, end: 201302
  2. SPIRIVA [Suspect]
     Indication: EMPHYSEMA

REACTIONS (8)
  - Bladder disorder [Recovered/Resolved]
  - Urinary retention [Recovered/Resolved]
  - Constipation [Recovered/Resolved]
  - Pain in extremity [Recovered/Resolved]
  - Malaise [Recovered/Resolved]
  - Urinary retention [Recovered/Resolved]
  - Pain in extremity [Unknown]
  - Constipation [Recovered/Resolved]
